FAERS Safety Report 25140976 (Version 1)
Quarter: 2025Q1

REPORT INFORMATION
  Report Type: Spontaneous
  Country: CR (occurrence: CR)
  Receive Date: 20250331
  Receipt Date: 20250331
  Transmission Date: 20250409
  Serious: Yes (Other)
  Sender: MERCK SHARP & DOHME LLC
  Company Number: CR-009507513-2267315

PATIENT
  Age: 72 Year
  Sex: Female

DRUGS (1)
  1. PEMBROLIZUMAB [Suspect]
     Active Substance: PEMBROLIZUMAB
     Indication: Malignant melanoma stage II
     Dates: start: 202405

REACTIONS (2)
  - Chronic cutaneous lupus erythematosus [Unknown]
  - Lichen planus [Unknown]

NARRATIVE: CASE EVENT DATE: 20240801
